FAERS Safety Report 23941009 (Version 1)
Quarter: 2024Q2

REPORT INFORMATION
  Report Type: Spontaneous
  Country: US (occurrence: None)
  Receive Date: 20240604
  Receipt Date: 20240604
  Transmission Date: 20240716
  Serious: No
  Sender: FDA-Public Use
  Company Number: None

PATIENT

DRUGS (2)
  1. ALBUMIN HUMAN [Suspect]
     Active Substance: ALBUMIN HUMAN
  2. HEMIN [Suspect]
     Active Substance: HEMIN

REACTIONS (3)
  - Product dispensing error [None]
  - Intercepted product dispensing error [None]
  - Product preparation error [None]
